FAERS Safety Report 5547220-0 (Version None)
Quarter: 2007Q4

REPORT INFORMATION
  Report Type: 
  Country: None (occurrence: None)
  Receive Date: 20071211
  Receipt Date: 20071203
  Transmission Date: 20080405
  Serious: Yes (Disabling, Other)
  Sender: FDA-Public Use
  Company Number: A0685932A

PATIENT
  Age: 26 Year
  Sex: Male
  Weight: 127.3 kg

DRUGS (2)
  1. LAMICTAL [Suspect]
     Indication: BIPOLAR DISORDER
     Dosage: 100MG PER DAY
     Route: 048
     Dates: start: 20070825
  2. SEROQUEL [Suspect]
     Indication: BIPOLAR DISORDER
     Dosage: 200MG THREE TIMES PER DAY
     Route: 048
     Dates: start: 20070825, end: 20070927

REACTIONS (2)
  - DRUG INTERACTION [None]
  - PRIAPISM [None]
